FAERS Safety Report 5083191-1 (Version None)
Quarter: 2006Q3

REPORT INFORMATION
  Report Type: 
  Country: None (occurrence: None)
  Receive Date: 20060724
  Receipt Date: 20031121
  Transmission Date: 20061208
  Serious: Yes (Hospitalization)
  Sender: FDA-Public Use
  Company Number: DRON00206001368

PATIENT
  Age: 52 Year
  Sex: Male

DRUGS (12)
  1. MARINOL [Suspect]
     Indication: MULTIPLE SCLEROSIS
     Dosage: DAILY ORAL: 2.5 MG-20 MG TITRATION
     Route: 048
     Dates: start: 20010830, end: 20011129
  2. MARINOL [Suspect]
     Indication: MUSCLE SPASTICITY
     Dosage: DAILY ORAL: 2.5 MG-20 MG TITRATION
     Route: 048
     Dates: start: 20010830, end: 20011129
  3. BACLOFEN [Concomitant]
  4. CARBAMAZEPINE [Concomitant]
  5. GABAPENTIN [Concomitant]
  6. GAMOLENIC ACID [Concomitant]
  7. NPH INSULIN [Concomitant]
  8. ASCORBIC ACID [Concomitant]
  9. OXYBUTYNIN [Concomitant]
  10. RABEPRAZOLE SODIUM [Concomitant]
  11. TRIMETHOPRIM [Concomitant]
  12. ALVERINE CITRATE [Concomitant]

REACTIONS (3)
  - CATHETER RELATED COMPLICATION [None]
  - PLEURAL EFFUSION [None]
  - TRANSIENT ISCHAEMIC ATTACK [None]
